FAERS Safety Report 14057849 (Version 2)
Quarter: 2017Q4

REPORT INFORMATION
  Report Type: Spontaneous
  Country: FR (occurrence: FR)
  Receive Date: 20171006
  Receipt Date: 20171225
  Transmission Date: 20180321
  Serious: Yes (Hospitalization)
  Sender: FDA-Public Use
  Company Number: PHHY2017FR143620

PATIENT
  Age: 2 Year
  Sex: Male
  Weight: 13 kg

DRUGS (10)
  1. SANDIMMUN [Suspect]
     Active Substance: CYCLOSPORINE
     Dosage: 10 MG, BID
     Route: 042
     Dates: start: 20170912
  2. SANDIMMUN [Suspect]
     Active Substance: CYCLOSPORINE
     Dosage: 10 MG, BID
     Route: 042
     Dates: start: 20170821
  3. METHYLPREDNISOLONE MYLAN [Suspect]
     Active Substance: METHYLPREDNISOLONE
     Indication: BONE MARROW TRANSPLANT
     Dosage: 28 MG, QD
     Route: 042
     Dates: start: 201707
  4. SANDIMMUN [Suspect]
     Active Substance: CYCLOSPORINE
     Dosage: 30 MG, BID
     Route: 042
     Dates: start: 20170806
  5. SANDIMMUN [Suspect]
     Active Substance: CYCLOSPORINE
     Dosage: 25 MG, BID
     Route: 042
     Dates: start: 20170831
  6. CELLCEPT [Suspect]
     Active Substance: MYCOPHENOLATE MOFETIL\MYCOPHENOLATE MOFETIL HYDROCHLORIDE
     Indication: BONE MARROW TRANSPLANT
     Dosage: 200 MG, IN 8H
     Route: 042
     Dates: start: 20170725, end: 20170820
  7. SANDIMMUN [Suspect]
     Active Substance: CYCLOSPORINE
     Indication: BONE MARROW TRANSPLANT
     Dosage: 20 MG, BID
     Route: 042
     Dates: start: 20170721
  8. SANDIMMUN [Suspect]
     Active Substance: CYCLOSPORINE
     Dosage: 25 MG, BID
     Route: 042
     Dates: start: 20170812
  9. SANDIMMUN [Suspect]
     Active Substance: CYCLOSPORINE
     Dosage: 30 MG, BID
     Route: 042
     Dates: start: 20170902
  10. SANDIMMUN [Suspect]
     Active Substance: CYCLOSPORINE
     Dosage: 15 MG, BID
     Route: 042
     Dates: start: 20170909

REACTIONS (6)
  - Ulcerative gastritis [Recovering/Resolving]
  - Diarrhoea [Recovering/Resolving]
  - Off label use [Unknown]
  - Product use in unapproved indication [Unknown]
  - Vomiting [Recovering/Resolving]
  - Colitis ulcerative [Recovering/Resolving]

NARRATIVE: CASE EVENT DATE: 20170903
